FAERS Safety Report 12773053 (Version 2)
Quarter: 2016Q4

REPORT INFORMATION
  Report Type: Spontaneous
  Country: US (occurrence: US)
  Receive Date: 20160922
  Receipt Date: 20161209
  Transmission Date: 20170207
  Serious: No
  Sender: FDA-Public Use
  Company Number: US-BION-20160009

PATIENT
  Age: 35 Year
  Sex: Female
  Weight: 72.57 kg

DRUGS (1)
  1. ZYRTEC [Suspect]
     Active Substance: CETIRIZINE HYDROCHLORIDE
     Indication: MULTIPLE ALLERGIES
     Route: 048
     Dates: start: 20160329, end: 20160331

REACTIONS (10)
  - Eye pain [Unknown]
  - Hypersensitivity [Unknown]
  - Malaise [Unknown]
  - Toothache [Unknown]
  - Facial pain [Unknown]
  - Paraesthesia [Unknown]
  - Pain in extremity [Unknown]
  - Pain [Unknown]
  - Paraesthesia [Unknown]
  - Inflammation [Unknown]

NARRATIVE: CASE EVENT DATE: 20160329
